FAERS Safety Report 17424105 (Version 2)
Quarter: 2020Q1

REPORT INFORMATION
  Report Type: Spontaneous
  Country: US (occurrence: US)
  Receive Date: 20200217
  Receipt Date: 20200219
  Transmission Date: 20200409
  Serious: Yes (Other)
  Sender: FDA-Public Use
  Company Number: US-TERSERA THERAPEUTICS LLC-2020TRS000342

PATIENT

DRUGS (7)
  1. PRIALT [Suspect]
     Active Substance: ZICONOTIDE ACETATE
     Dosage: PUMP INFUSION WAS DECREASED BY 20%
     Route: 037
     Dates: start: 20200209
  2. DILAUDID [Interacting]
     Active Substance: HYDROMORPHONE HYDROCHLORIDE
     Indication: PRODUCT USED FOR UNKNOWN INDICATION
     Dosage: 3356 MCG, QD
     Route: 037
  3. FENTANYL TRANSDERMAL SYSTEM [Suspect]
     Active Substance: FENTANYL
     Indication: PRODUCT USED FOR UNKNOWN INDICATION
     Dosage: UNK
     Route: 065
  4. DILAUDID [Interacting]
     Active Substance: HYDROMORPHONE HYDROCHLORIDE
     Dosage: PUMP INFUSION WAS DECREASED BY 20%
     Route: 037
     Dates: start: 20200209
  5. BACLOFEN. [Suspect]
     Active Substance: BACLOFEN
     Indication: PRODUCT USED FOR UNKNOWN INDICATION
     Dosage: 419 MCG, QD (CONCENTRATION: 1,500)
     Route: 037
  6. PRIALT [Suspect]
     Active Substance: ZICONOTIDE ACETATE
     Indication: PRODUCT USED FOR UNKNOWN INDICATION
     Dosage: 2.516 MCG, QD (CONCENTRATION: 9.0 MCG/ML)
     Route: 037
  7. BACLOFEN. [Suspect]
     Active Substance: BACLOFEN
     Dosage: PUMP INFUSION WAS DECREASED BY 20%
     Route: 037
     Dates: start: 20200209

REACTIONS (7)
  - Hypotension [Recovered/Resolved]
  - Pyrexia [Recovered/Resolved]
  - Ill-defined disorder [Recovered/Resolved]
  - Hypoxia [Recovered/Resolved]
  - Somnolence [Recovered/Resolved]
  - Chills [Recovered/Resolved]
  - Off label use [Unknown]

NARRATIVE: CASE EVENT DATE: 2020
